FAERS Safety Report 9426596 (Version 1)
Quarter: 2013Q3

REPORT INFORMATION
  Report Type: Spontaneous
  Country: US (occurrence: None)
  Receive Date: 20130729
  Receipt Date: 20130729
  Transmission Date: 20140515
  Serious: Yes (Life-Threatening, Disabling, Other)
  Sender: FDA-Public Use
  Company Number: None

PATIENT
  Age: 70 Year
  Sex: Female
  Weight: 108.86 kg

DRUGS (6)
  1. AZITHROMYCIN [Suspect]
     Indication: LYME DISEASE
     Route: 048
     Dates: start: 20121214, end: 20121216
  2. AZITHROMYCIN [Suspect]
     Indication: ARTHRALGIA
     Route: 048
     Dates: start: 20121214, end: 20121216
  3. BIAXIN [Concomitant]
  4. VITAMIN B COMPLEX [Concomitant]
  5. VITAMIN E [Concomitant]
  6. FLAXSEED OIL [Concomitant]

REACTIONS (7)
  - Tremor [None]
  - Influenza [None]
  - Pneumonia [None]
  - Myocardial infarction [None]
  - Decreased activity [None]
  - Economic problem [None]
  - Impaired work ability [None]
